FAERS Safety Report 20016472 (Version 1)
Quarter: 2021Q4

REPORT INFORMATION
  Report Type: Spontaneous
  Country: US (occurrence: None)
  Receive Date: 20211104
  Receipt Date: 20211104
  Transmission Date: 20220304
  Serious: Yes (Hospitalization)
  Sender: FDA-Public Use
  Company Number: None

PATIENT
  Sex: Male

DRUGS (1)
  1. ZARXIO [Suspect]
     Active Substance: FILGRASTIM-SNDZ
     Indication: Lymphocytic leukaemia
     Dosage: OTHER QUANTITY : 480MCG;?FREQUENCY : TWICE A DAY;?
     Route: 058
     Dates: start: 20210928

REACTIONS (1)
  - Hospitalisation [None]
